FAERS Safety Report 6148828-4 (Version None)
Quarter: 2009Q2

REPORT INFORMATION
  Report Type: 
  Country: None (occurrence: None)
  Receive Date: 20090406
  Receipt Date: 20090327
  Transmission Date: 20091009
  Serious: Yes (Other)
  Sender: FDA-Public Use
  Company Number: TUK2009A00056

PATIENT
  Age: 60 Year
  Sex: Male

DRUGS (11)
  1. ACTOS [Suspect]
     Indication: DIABETES MELLITUS
     Dosage: 15 MG ORAL
     Route: 048
     Dates: start: 20081128, end: 20090113
  2. ASPIRIN [Concomitant]
  3. ATENOLOL [Concomitant]
  4. BUMETANIDE [Concomitant]
  5. CAPTOPRIL [Concomitant]
  6. GLICLAZIDE (GLICLAZIDE) [Concomitant]
  7. METFORMIN HCL [Concomitant]
  8. PIROXICAM [Concomitant]
  9. RANITIDINE [Concomitant]
  10. SIMVASTATIN [Concomitant]
  11. DILTIAZEM HYDROCHLORIDE [Concomitant]

REACTIONS (3)
  - ABDOMINAL DISTENSION [None]
  - IRON DEFICIENCY ANAEMIA [None]
  - PRURITUS [None]
